FAERS Safety Report 6043583-0 (Version None)
Quarter: 2009Q1

REPORT INFORMATION
  Report Type: 
  Country: None (occurrence: None)
  Receive Date: 20090115
  Receipt Date: 20090108
  Transmission Date: 20090719
  Serious: Yes (Hospitalization)
  Sender: FDA-Public Use
  Company Number: GXKR2009GB00524

PATIENT
  Age: 57 Year
  Sex: Male

DRUGS (11)
  1. METRONIDAZOLE [Suspect]
     Indication: CLOSTRIDIAL INFECTION
     Dosage: 400 MG, TID, ORAL
     Route: 048
     Dates: start: 20081019, end: 20081020
  2. VANCOMYCIN [Suspect]
     Indication: CLOSTRIDIAL INFECTION
     Dosage: 125 MG, QID, ORAL
     Route: 048
     Dates: start: 20081019, end: 20081019
  3. AMITRIPTYLINE HYDROCHLORIDE [Concomitant]
  4. CEFTAZIDIME [Concomitant]
  5. COLISTIN SULFATE (COLISTIN SULFATE) [Concomitant]
  6. FLUOXETINE [Concomitant]
  7. MAGNESIUM GLYCEROPHOSPHATE (MAGNESIUM GLYCEROPHOSPHATE) [Concomitant]
  8. PIPERACILLIN SODIUM AND TAZOBACTAM SODIUM [Concomitant]
  9. TEICOPLANIN (TEICOPLANIN) [Concomitant]
  10. VITAMIN B COMPLEX CAP [Concomitant]
  11. VITAMIN D [Concomitant]

REACTIONS (3)
  - RASH GENERALISED [None]
  - RED MAN SYNDROME [None]
  - SWELLING FACE [None]
